FAERS Safety Report 6679923-9 (Version None)
Quarter: 2010Q2

REPORT INFORMATION
  Report Type: 
  Country: None (occurrence: None)
  Receive Date: 20100413
  Receipt Date: 20100315
  Transmission Date: 20101027
  Serious: Yes (Death)
  Sender: FDA-Public Use
  Company Number: US-BAXTER-2010BH004946

PATIENT
  Sex: Female

DRUGS (1)
  1. HEPARIN SODIUM INJECTION [Suspect]
     Indication: THROMBOSIS
     Route: 042

REACTIONS (4)
  - ABDOMINAL PAIN [None]
  - BONE CANCER METASTATIC [None]
  - RENAL FAILURE CHRONIC [None]
  - VOMITING [None]
